FAERS Safety Report 8988518 (Version 1)
Quarter: 2012Q4

REPORT INFORMATION
  Report Type: Spontaneous
  Country: US (occurrence: None)
  Receive Date: 20121224
  Receipt Date: 20121224
  Transmission Date: 20130627
  Serious: No
  Sender: FDA-Public Use
  Company Number: None

PATIENT
  Age: 44 Year
  Sex: Male

DRUGS (2)
  1. DEXAMETHASONE [Suspect]
     Indication: MULTIPLE MYELOMA
     Dosage: 4 dayson/off
     Route: 048
  2. ZOMETA [Suspect]
     Route: 042
     Dates: start: 20121207, end: 20121207

REACTIONS (5)
  - Anger [None]
  - Mood swings [None]
  - Influenza like illness [None]
  - Pyrexia [None]
  - Chills [None]
